FAERS Safety Report 5649103-4 (Version None)
Quarter: 2008Q1

REPORT INFORMATION
  Report Type: 
  Country: None (occurrence: None)
  Receive Date: 20080304
  Receipt Date: 20080220
  Transmission Date: 20080703
  Serious: Yes (Hospitalization)
  Sender: FDA-Public Use
  Company Number: US-ELI_LILLY_AND_COMPANY-US200802004769

PATIENT
  Age: 89 Year
  Sex: Female

DRUGS (15)
  1. FORTEO [Suspect]
     Indication: OSTEOPOROSIS
     Dates: start: 20071101
  2. CALCIUM [Concomitant]
     Indication: SUPPLEMENTATION THERAPY
     Dosage: 600 MG, 2/D
     Dates: end: 20080201
  3. LASIX [Concomitant]
     Dosage: 20 MG, DAILY (1/D)
  4. LIPITOR [Concomitant]
     Dosage: 40 MG, DAILY (1/D)
  5. VICODIN [Concomitant]
     Dosage: 500 MG, DAILY (1/D)
  6. VITAMIN B12 NOS [Concomitant]
     Dosage: UNK, DAILY (1/D)
  7. ICAPS [Concomitant]
     Indication: MACULAR DEGENERATION
     Dosage: 4 UNK, DAILY (1/D)
  8. NEXIUM [Concomitant]
     Dosage: 40 MG, DAILY (1/D)
  9. ENABLEX                            /01760402/ [Concomitant]
     Dosage: 15 MG, DAILY (1/D)
  10. ATENOLOL [Concomitant]
     Dosage: 100 MG, 2/D
  11. PROMETHAZINE [Concomitant]
     Indication: NAUSEA
     Dosage: 25 MG, DAILY (1/D)
  12. XANAX [Concomitant]
     Dosage: 0.25 MG, DAILY (1/D)
  13. POTASSIUM CHLORIDE [Concomitant]
     Dosage: 10 MG, DAILY (1/D)
  14. ASPIRIN [Concomitant]
     Dosage: 81 MG, UNK
  15. NITRODERM [Concomitant]
     Dosage: 2 %, 2/D

REACTIONS (8)
  - ASTHENIA [None]
  - CARDIAC FAILURE CONGESTIVE [None]
  - DECREASED APPETITE [None]
  - LIP DISORDER [None]
  - MUSCULAR WEAKNESS [None]
  - NAUSEA [None]
  - PNEUMONIA [None]
  - VOMITING [None]
